FAERS Safety Report 5253711-2 (Version None)
Quarter: 2007Q1

REPORT INFORMATION
  Report Type: 
  Country: None (occurrence: None)
  Receive Date: 20070226
  Receipt Date: 20070213
  Transmission Date: 20070707
  Serious: Yes (Other)
  Sender: FDA-Public Use
  Company Number: VNL_0416_2007

PATIENT
  Age: 79 Year
  Sex: Male
  Weight: 73.9363 kg

DRUGS (21)
  1. APOKYN [Suspect]
     Indication: PARKINSON'S DISEASE
     Dosage: DF UNK SC
     Route: 058
     Dates: start: 20070101, end: 20070212
  2. SINEMET [Concomitant]
  3. REQUIP [Concomitant]
  4. ASPIRIN [Concomitant]
  5. ASCORBIC ACID [Concomitant]
  6. VITAMIN CAP [Concomitant]
  7. FIBROLAX WITH CALCIUM [Concomitant]
  8. STOOL SOFTENER WITH LAXATIVE [Concomitant]
  9. PRELIEF [Concomitant]
  10. COMTAN [Concomitant]
  11. NEURONTIN [Concomitant]
  12. WELLBUTRIN [Concomitant]
  13. ARICEPT [Concomitant]
  14. OMEGA 3 [Concomitant]
  15. MAGNESIUM OXIDE [Concomitant]
  16. PREVACID [Concomitant]
  17. VALIUM [Concomitant]
  18. FOLIC ACID [Concomitant]
  19. CELEBREX [Concomitant]
  20. SYNTHROID [Concomitant]
  21. MILK OF MAGNESIA [Concomitant]

REACTIONS (6)
  - CONSTIPATION [None]
  - DEHYDRATION [None]
  - FLUID RETENTION [None]
  - HALLUCINATION [None]
  - LUNG INFILTRATION [None]
  - SWELLING [None]
